FAERS Safety Report 13096371 (Version 1)
Quarter: 2017Q1

REPORT INFORMATION
  Report Type: Spontaneous
  Country: US (occurrence: US)
  Receive Date: 20170109
  Receipt Date: 20170109
  Transmission Date: 20170428
  Serious: Yes (Other)
  Sender: FDA-Public Use
  Company Number: PHHY2017US000676

PATIENT
  Age: 52 Year
  Sex: Female

DRUGS (1)
  1. GILENYA [Suspect]
     Active Substance: FINGOLIMOD HYDROCHLORIDE
     Indication: MULTIPLE SCLEROSIS
     Dosage: 0.5 MG, QD
     Route: 065

REACTIONS (6)
  - Malignant melanoma stage II [Recovered/Resolved]
  - Skin ulcer [Recovered/Resolved]
  - Melanocytic naevus [Recovered/Resolved]
  - Scab [Recovered/Resolved]
  - Skin plaque [Recovered/Resolved]
  - Macule [Recovered/Resolved]
